FAERS Safety Report 7037981-6 (Version None)
Quarter: 2010Q4

REPORT INFORMATION
  Report Type: 
  Country: None (occurrence: None)
  Receive Date: 20101011
  Receipt Date: 20101001
  Transmission Date: 20110411
  Serious: Yes (Hospitalization)
  Sender: FDA-Public Use
  Company Number: JP-SANOFI-AVENTIS-2010SA051578

PATIENT
  Age: 66 Year
  Sex: Male
  Weight: 65 kg

DRUGS (10)
  1. PLAVIX [Suspect]
     Indication: CAROTID ARTERY STENOSIS
     Route: 048
     Dates: start: 20090511, end: 20100618
  2. DEPAS [Concomitant]
     Indication: MYALGIA
     Route: 048
     Dates: start: 20090615
  3. DASEN [Concomitant]
     Indication: INFLAMMATION
     Dosage: ADMINISTERED AS NEEDED FOR 5 TO 7 DAYS.
     Route: 048
     Dates: start: 20090615
  4. TAMSULOSIN HCL [Concomitant]
     Indication: PRODUCT USED FOR UNKNOWN INDICATION
     Dates: start: 20090401
  5. CLARITHROMYCIN [Concomitant]
     Route: 048
     Dates: start: 20100614, end: 20100615
  6. LOXONIN [Concomitant]
     Route: 048
     Dates: start: 20100614, end: 20100615
  7. LOXONIN [Concomitant]
     Route: 048
     Dates: start: 20100601
  8. MUCOSTA [Concomitant]
     Route: 048
     Dates: start: 20100614
  9. MUCODYNE [Concomitant]
     Route: 048
     Dates: start: 20100614
  10. CRAVIT [Concomitant]
     Route: 048
     Dates: start: 20100601

REACTIONS (4)
  - BLOOD CREATINE PHOSPHOKINASE INCREASED [None]
  - OFF LABEL USE [None]
  - PYREXIA [None]
  - RHABDOMYOLYSIS [None]
